FAERS Safety Report 11018438 (Version 2)
Quarter: 2015Q2

REPORT INFORMATION
  Report Type: Spontaneous
  Country: US (occurrence: US)
  Receive Date: 20150412
  Receipt Date: 20150524
  Transmission Date: 20150821
  Serious: Yes (Other)
  Sender: FDA-Public Use
  Company Number: US-JNJFOC-20131009347

PATIENT

DRUGS (3)
  1. RADIOTHERAPY [Suspect]
     Active Substance: RADIATION THERAPY
     Indication: AESTHESIONEUROBLASTOMA
     Dosage: 5238 CGY (R 4140-6600)
     Route: 065
  2. DOXORUBICIN [Suspect]
     Active Substance: DOXORUBICIN
     Indication: AESTHESIONEUROBLASTOMA
     Route: 042
  3. DACTINOMYCIN [Suspect]
     Active Substance: DACTINOMYCIN
     Indication: AESTHESIONEUROBLASTOMA
     Route: 065

REACTIONS (2)
  - Aesthesioneuroblastoma [Unknown]
  - Product use issue [Unknown]
